FAERS Safety Report 25616238 (Version 1)
Quarter: 2025Q3

REPORT INFORMATION
  Report Type: Other
  Country: GB (occurrence: GB)
  Receive Date: 20250729
  Receipt Date: 20250729
  Transmission Date: 20251021
  Serious: Yes (Other)
  Sender: ZYDUS PHARM
  Company Number: None

PATIENT

DRUGS (1)
  1. APIXABAN [Suspect]
     Active Substance: APIXABAN
     Indication: Deep vein thrombosis
     Route: 065
     Dates: start: 20241220, end: 20250710

REACTIONS (14)
  - Palpitations [Recovered/Resolved with Sequelae]
  - Brain fog [Recovered/Resolved]
  - Abdominal pain upper [Recovered/Resolved with Sequelae]
  - Dyspepsia [Recovering/Resolving]
  - Muscular weakness [Recovering/Resolving]
  - Muscular weakness [Recovering/Resolving]
  - Hypoaesthesia [Recovering/Resolving]
  - Constipation [Recovering/Resolving]
  - Palpitations [Recovering/Resolving]
  - Malaise [Recovering/Resolving]
  - Fatigue [Recovering/Resolving]
  - Fatigue [Recovering/Resolving]
  - Weight decreased [Not Recovered/Not Resolved]
  - Headache [Recovered/Resolved]
